FAERS Safety Report 9397674 (Version 1)
Quarter: 2013Q3

REPORT INFORMATION
  Report Type: Spontaneous
  Country: US (occurrence: US)
  Receive Date: 20130712
  Receipt Date: 20130712
  Transmission Date: 20140515
  Serious: Yes (Life-Threatening)
  Sender: FDA-Public Use
  Company Number: US-CELGENEUS-163-21880-13071200

PATIENT
  Age: 68 Year
  Sex: Male
  Weight: 93.98 kg

DRUGS (3)
  1. REVLIMID [Suspect]
     Indication: PLASMA CELL MYELOMA
     Dosage: 10 MILLIGRAM
     Route: 048
     Dates: start: 20130604, end: 20130609
  2. ASPIRIN [Concomitant]
     Indication: PROPHYLAXIS
     Dosage: 81 MICROGRAM
     Route: 048
     Dates: start: 20130604, end: 20130609
  3. THALOMID [Concomitant]
     Indication: PLASMA CELL MYELOMA
     Dosage: 200 MICROGRAM
     Route: 048
     Dates: start: 20101219, end: 20121126

REACTIONS (1)
  - Anaphylactic reaction [Recovered/Resolved]
